FAERS Safety Report 9200942 (Version 2)
Quarter: 2013Q3

REPORT INFORMATION
  Report Type: Spontaneous
  Country: CO (occurrence: CO)
  Receive Date: 20130401
  Receipt Date: 20130805
  Transmission Date: 20140515
  Serious: Yes (Other)
  Sender: FDA-Public Use
  Company Number: CO-JNJFOC-20130315232

PATIENT
  Sex: Female

DRUGS (1)
  1. REMICADE [Suspect]
     Indication: LICHEN PLANUS
     Dosage: INITIATION PHASE
     Route: 042

REACTIONS (6)
  - Tachycardia [Recovering/Resolving]
  - Infusion related reaction [Recovering/Resolving]
  - Rash [Recovering/Resolving]
  - Arthralgia [Unknown]
  - Off label use [Unknown]
  - Blood pressure increased [Recovering/Resolving]
